FAERS Safety Report 13506890 (Version 3)
Quarter: 2019Q2

REPORT INFORMATION
  Report Type: Spontaneous
  Country: GB (occurrence: GB)
  Receive Date: 20170502
  Receipt Date: 20190603
  Transmission Date: 20190711
  Serious: Yes (Hospitalization, Other)
  Sender: FDA-Public Use
  Company Number: GB-MYLANLABS-2017M1026541

PATIENT
  Age: 64 Year
  Sex: Male

DRUGS (1)
  1. CLOZARIL [Suspect]
     Active Substance: CLOZAPINE
     Indication: SCHIZOPHRENIA
     Dosage: UNK
     Route: 048
     Dates: start: 20140130

REACTIONS (7)
  - Intestinal obstruction [Unknown]
  - Platelet count decreased [Recovered/Resolved]
  - Acute kidney injury [Unknown]
  - Diarrhoea [Unknown]
  - Enteritis [Unknown]
  - C-reactive protein increased [Unknown]
  - Vomiting [Unknown]

NARRATIVE: CASE EVENT DATE: 20190520
